FAERS Safety Report 7183449-6 (Version None)
Quarter: 2010Q4

REPORT INFORMATION
  Report Type: 
  Country: None (occurrence: None)
  Receive Date: 20101220
  Receipt Date: 20101220
  Transmission Date: 20110411
  Serious: Yes (Hospitalization)
  Sender: FDA-Public Use
  Company Number: None

PATIENT
  Sex: Female
  Weight: 60.72 kg

DRUGS (3)
  1. CISPLATIN [Suspect]
     Dosage: 119 MG
     Dates: end: 20101116
  2. TAXOTERE [Suspect]
     Dosage: 119 MG
     Dates: end: 20101116
  3. FENTANYL-100 [Concomitant]

REACTIONS (5)
  - ANAEMIA [None]
  - ANXIETY [None]
  - NAUSEA [None]
  - RETCHING [None]
  - VOMITING [None]
